FAERS Safety Report 5688568-9 (Version None)
Quarter: 2008Q1

REPORT INFORMATION
  Report Type: 
  Country: None (occurrence: None)
  Receive Date: 20080331
  Receipt Date: 20080325
  Transmission Date: 20080703
  Serious: Yes (Hospitalization)
  Sender: FDA-Public Use
  Company Number: GB-TEVA-169214ISR

PATIENT
  Age: 26 Year
  Sex: Male

DRUGS (1)
  1. ONDANSETRON [Suspect]

REACTIONS (1)
  - TOXIC SKIN ERUPTION [None]
